FAERS Safety Report 5877592-9 (Version None)
Quarter: 2008Q3

REPORT INFORMATION
  Report Type: 
  Country: None (occurrence: None)
  Receive Date: 20080911
  Receipt Date: 20080904
  Transmission Date: 20090109
  Serious: Yes (Hospitalization)
  Sender: FDA-Public Use
  Company Number: PHNU2008DE01420

PATIENT
  Sex: Female

DRUGS (4)
  1. PROVAS [Suspect]
     Indication: HYPERTENSION
     Dosage: 1 DF/DAY
     Route: 048
     Dates: start: 20080213, end: 20080220
  2. SIMVASTATIN [Concomitant]
     Indication: HYPERLIPIDAEMIA
     Route: 065
  3. AARANE [Concomitant]
     Indication: BRONCHITIS
     Dosage: 1 DF, BID
  4. DICLOFENAC RESINATE [Concomitant]
     Indication: SPINAL OSTEOARTHRITIS
     Dosage: UNK, PRN
     Route: 048

REACTIONS (4)
  - CARBUNCLE [None]
  - PURULENT DISCHARGE [None]
  - RASH [None]
  - SCAR [None]
